FAERS Safety Report 10780094 (Version 1)
Quarter: 2015Q1

REPORT INFORMATION
  Report Type: Spontaneous
  Country: US (occurrence: US)
  Receive Date: 20150210
  Receipt Date: 20150210
  Transmission Date: 20150721
  Serious: No
  Sender: FDA-Public Use
  Company Number: US-GLAXOSMITHKLINE-A1013266A

PATIENT

DRUGS (2)
  1. OLUX-E [Suspect]
     Active Substance: CLOBETASOL PROPIONATE
     Indication: DERMATOSIS
     Route: 061
     Dates: start: 20130131, end: 20130205
  2. NO CONCURRENT MEDICATION [Concomitant]
     Active Substance: UNSPECIFIED INGREDIENT

REACTIONS (1)
  - Nausea [Not Recovered/Not Resolved]

NARRATIVE: CASE EVENT DATE: 20130201
